FAERS Safety Report 13738074 (Version 4)
Quarter: 2017Q3

REPORT INFORMATION
  Report Type: Spontaneous
  Country: JP (occurrence: JP)
  Receive Date: 20170710
  Receipt Date: 20170728
  Transmission Date: 20171127
  Serious: Yes (Hospitalization, Other)
  Sender: FDA-Public Use
  Company Number: JP-PFIZER INC-2017251953

PATIENT
  Age: 66 Year
  Sex: Male
  Weight: 66 kg

DRUGS (16)
  1. OLANZAPINE. [Concomitant]
     Active Substance: OLANZAPINE
     Indication: DELUSION
  2. ROHYPNOL [Concomitant]
     Active Substance: FLUNITRAZEPAM
     Indication: INSOMNIA
     Dosage: 2 MG, 1X/DAY
     Route: 048
  3. ALEVIATIN [Concomitant]
     Active Substance: PHENYTOIN SODIUM
     Indication: EPILEPSY
     Dosage: 1.25 G, 2X/DAY
     Route: 048
  4. LYRICA [Suspect]
     Active Substance: PREGABALIN
     Indication: NEURALGIA
     Dosage: 75 MG, 2X/DAY (IN THE MORNING AND IN THE EVENING)
     Route: 048
     Dates: start: 20170530, end: 20170602
  5. MYSLEE [Concomitant]
     Active Substance: ZOLPIDEM TARTRATE
     Indication: INSOMNIA
     Dosage: 10 MG, 1X/DAY
     Route: 048
  6. RISPERDAL [Concomitant]
     Active Substance: RISPERIDONE
     Indication: DELUSION
  7. JUVELA N [Concomitant]
     Active Substance: TOCOPHERYL NICOTINATE, D-.ALPHA.
     Indication: ARTERIOSCLEROSIS CORONARY ARTERY
     Dosage: 200 MG, 2X/DAY
     Route: 048
  8. BIPERIDEN [Concomitant]
     Active Substance: BIPERIDEN
     Indication: PARKINSONISM
     Dosage: 2 MG, 2X/DAY
     Route: 048
  9. SENNOSIDE [Concomitant]
     Active Substance: SENNOSIDES
     Indication: CONSTIPATION
     Dosage: 12 MG, 1X/DAY
     Route: 048
  10. RISPERDAL [Concomitant]
     Active Substance: RISPERIDONE
     Indication: HALLUCINATION, AUDITORY
     Dosage: 3 MG, 2X/DAY
     Route: 048
  11. SOLANAX [Concomitant]
     Active Substance: ALPRAZOLAM
     Indication: ANXIETY
     Dosage: 0.4 MG, 3X/DAY
     Route: 048
  12. OLANZAPINE. [Concomitant]
     Active Substance: OLANZAPINE
     Indication: HALLUCINATION, AUDITORY
     Dosage: 10 MG, 1X/DAY
     Route: 048
  13. DEPAKENE [Concomitant]
     Active Substance: VALPROIC ACID
     Indication: EPILEPSY
     Dosage: 1.25 G, 2X/DAY
     Route: 048
  14. LONASEN [Concomitant]
     Active Substance: BLONANSERIN
     Indication: HALLUCINATION, AUDITORY
     Dosage: 8 MG, 2X/DAY
     Route: 048
  15. LONASEN [Concomitant]
     Active Substance: BLONANSERIN
     Indication: DELUSION
  16. ALLEGRA [Concomitant]
     Active Substance: FEXOFENADINE HYDROCHLORIDE
     Indication: RHINITIS ALLERGIC
     Dosage: 60 MG, 2X/DAY
     Route: 048

REACTIONS (2)
  - Transient ischaemic attack [Recovered/Resolved]
  - Altered state of consciousness [Recovered/Resolved]

NARRATIVE: CASE EVENT DATE: 201705
